FAERS Safety Report 6083156-7 (Version None)
Quarter: 2009Q1

REPORT INFORMATION
  Report Type: 
  Country: None (occurrence: None)
  Receive Date: 20090213
  Receipt Date: 20090213
  Transmission Date: 20090719
  Serious: No
  Sender: FDA-Public Use
  Company Number: None

PATIENT
  Sex: Female
  Weight: 70.7611 kg

DRUGS (2)
  1. CLARITIN [Suspect]
     Dosage: 10 MG 1 TAB ONCE A DAY
     Dates: start: 20080101
  2. LORATADINE [Suspect]
     Dosage: 10 MG 1 TAB ONCE A DAY
     Dates: start: 20080101

REACTIONS (3)
  - PRURITUS [None]
  - SWELLING [None]
  - URTICARIA [None]
